FAERS Safety Report 4433768-9 (Version None)
Quarter: 2004Q3

REPORT INFORMATION
  Report Type: 
  Country: None (occurrence: None)
  Receive Date: 20040824
  Receipt Date: 20040811
  Transmission Date: 20050211
  Serious: Yes (Hospitalization, Other)
  Sender: FDA-Public Use
  Company Number: 2004056091

PATIENT
  Sex: Female

DRUGS (17)
  1. NEURONTIN [Suspect]
     Indication: TRIGEMINAL NEURALGIA
     Dosage: ORAL
     Route: 048
     Dates: start: 19980101
  2. ERYTHROMYCIN [Concomitant]
     Indication: ILL-DEFINED DISORDER
     Dates: start: 20021226
  3. TETRACYCLINE [Suspect]
     Indication: BRONCHITIS
     Dates: start: 20030201
  4. OXYCODONE HCL [Concomitant]
     Indication: ILL-DEFINED DISORDER
  5. MORPHINE SULFATE (MORPHINE SULFATE0 [Concomitant]
  6. CLONIDINE [Concomitant]
  7. FENTANYL CITRATE [Concomitant]
  8. LANSOPRAZOLE [Concomitant]
  9. SUCRALFATE [Concomitant]
  10. CEVIMELINE HYDROCHLORIDE (CEVIMELINE HYDROCHLORIDE) [Concomitant]
  11. DIGOXIN [Concomitant]
  12. LEVOTHYROXINE SODIUM [Concomitant]
  13. OXYBUTYNIN CHLORIDE [Concomitant]
  14. MELOXICAM (MELOXICAM) [Concomitant]
  15. METAXALONE [Concomitant]
  16. FUROSEMIDE 9FUROSEMIDE) [Concomitant]
  17. CALCITONIN, SALMON (CALCITONIN, SALMON) [Concomitant]

REACTIONS (18)
  - ABNORMAL BEHAVIOUR [None]
  - ASTHENIA [None]
  - BRONCHITIS [None]
  - CHEST PAIN [None]
  - COGNITIVE DISORDER [None]
  - ELECTROENCEPHALOGRAM ABNORMAL [None]
  - LOSS OF CONSCIOUSNESS [None]
  - MEMORY IMPAIRMENT [None]
  - OVERDOSE [None]
  - PARAESTHESIA [None]
  - PERSONALITY CHANGE [None]
  - PYREXIA [None]
  - SCREAMING [None]
  - SOMNOLENCE [None]
  - STOMACH DISCOMFORT [None]
  - SURGICAL PROCEDURE REPEATED [None]
  - THINKING ABNORMAL [None]
  - VOMITING [None]
